FAERS Safety Report 7378530-2 (Version None)
Quarter: 2011Q1

REPORT INFORMATION
  Report Type: 
  Country: None (occurrence: None)
  Receive Date: 20110323
  Receipt Date: 20110323
  Transmission Date: 20110831
  Serious: Yes (Other)
  Sender: FDA-Public Use
  Company Number: None

PATIENT
  Sex: Female
  Weight: 3.3 kg

DRUGS (3)
  1. ACYCLOVIR [Suspect]
  2. ACYCLOVIR [Suspect]
     Indication: APPARENT LIFE THREATENING EVENT
     Dosage: 60 MG Q8H IV DRIP 9 DOSES
     Route: 041
     Dates: start: 20110311, end: 20110313
  3. ACYCLOVIR [Suspect]
     Indication: MENINGITIS
     Dosage: 60 MG Q8H IV DRIP 9 DOSES
     Route: 041
     Dates: start: 20110311, end: 20110313

REACTIONS (1)
  - SINUS TACHYCARDIA [None]
